FAERS Safety Report 8520443-4 (Version None)
Quarter: 2012Q3

REPORT INFORMATION
  Report Type: 
  Country: None (occurrence: None)
  Receive Date: 20120719
  Receipt Date: 20120716
  Transmission Date: 20120928
  Serious: Yes (Other)
  Sender: FDA-Public Use
  Company Number: AU-AMGEN-AUSCT2012040616

PATIENT
  Age: 33 Year
  Sex: Female

DRUGS (5)
  1. DENOSUMAB [Suspect]
     Indication: BONE GIANT CELL TUMOUR
     Dosage: 120 MG, Q4WK
     Route: 058
     Dates: start: 20061011, end: 20090422
  2. ACETAMINOPHEN [Concomitant]
     Dosage: 1 G, UNK
     Dates: start: 20120301
  3. GABAPENTIN [Concomitant]
     Dosage: 300 MG, QD
     Dates: start: 20120328
  4. BUPRENORPHINE [Concomitant]
     Dosage: 5 MUG, UNK
     Dates: start: 20120301
  5. OXYCODONE HCL [Concomitant]
     Dosage: 5 MG, PRN
     Dates: start: 20120301

REACTIONS (1)
  - SARCOMA [None]
